FAERS Safety Report 16898560 (Version 1)
Quarter: 2019Q4

REPORT INFORMATION
  Report Type: Spontaneous
  Country: US (occurrence: US)
  Receive Date: 20190815
  Receipt Date: 20190815
  Transmission Date: 20200122
  Serious: No
  Sender: FDA-Public Use
  Company Number: None

PATIENT
  Age: 67 Year
  Sex: Female

DRUGS (1)
  1. ENBREL [Suspect]
     Active Substance: ETANERCEPT
     Route: 058
     Dates: start: 201807

REACTIONS (7)
  - Therapy cessation [None]
  - Hypotension [None]
  - Ankle fracture [None]
  - Pulmonary embolism [None]
  - Knee arthroplasty [None]
  - Urinary tract infection [None]
  - Fall [None]

NARRATIVE: CASE EVENT DATE: 20190815
